FAERS Safety Report 8546990 (Version 6)
Quarter: 2013Q3

REPORT INFORMATION
  Report Type: Spontaneous
  Country: FR (occurrence: FR)
  Receive Date: 20120504
  Receipt Date: 20130923
  Transmission Date: 20140515
  Serious: Yes (Hospitalization)
  Sender: FDA-Public Use
  Company Number: FR-VERTEX PHARMACEUTICALS INC.-000000000000000342

PATIENT
  Age: 65 Year
  Sex: Female
  Weight: 50 kg

DRUGS (5)
  1. INCIVO [Suspect]
     Indication: HEPATITIS C
     Dosage: 750 MG, TID
     Route: 048
     Dates: start: 20120107, end: 20120327
  2. INCIVO [Suspect]
     Dosage: UNK
     Route: 048
  3. RIBAVIRINE [Suspect]
     Indication: HEPATITIS C
     Dosage: UNK
     Route: 048
  4. RIBAVIRINE [Suspect]
     Dosage: 200 MG, UNK (FIVE TIMES A DAY)
     Route: 048
     Dates: start: 20120107, end: 20120327
  5. PEGYLATED INTERFERON [Suspect]
     Indication: HEPATITIS C
     Dosage: 1 DF, QW
     Route: 058
     Dates: start: 20120107, end: 20120327

REACTIONS (5)
  - Eosinophilia [Recovered/Resolved]
  - Lymphadenopathy [Recovered/Resolved]
  - Rash maculo-papular [Recovered/Resolved]
  - Face oedema [Recovered/Resolved]
  - Rash maculo-papular [Recovered/Resolved]
